FAERS Safety Report 4853473-4 (Version None)
Quarter: 2005Q4

REPORT INFORMATION
  Report Type: 
  Country: None (occurrence: None)
  Receive Date: 20051130
  Receipt Date: 20051007
  Transmission Date: 20060501
  Serious: No
  Sender: FDA-Public Use
  Company Number: WAES 0510USA04974

PATIENT
  Age: 43 Year
  Sex: Male

DRUGS (2)
  1. ZETIA [Suspect]
     Indication: BLOOD CHOLESTEROL ABNORMAL
     Dosage: 10 MG/DAILY/PO
     Route: 048
  2. STATIN (UNSPECIFIED) [Concomitant]

REACTIONS (1)
  - INFLUENZA LIKE ILLNESS [None]
